FAERS Safety Report 6821593-0 (Version None)
Quarter: 2010Q3

REPORT INFORMATION
  Report Type: 
  Country: None (occurrence: None)
  Receive Date: 20100707
  Receipt Date: 20090622
  Transmission Date: 20110219
  Serious: No
  Sender: FDA-Public Use
  Company Number: US-PFIZER INC-2009204400

PATIENT
  Age: 15 Year
  Sex: Male
  Weight: 56.7 kg

DRUGS (2)
  1. SERTRALINE HCL [Suspect]
     Dosage: 25 MG, 1X/DAY
     Dates: start: 20090401
  2. LISDEXAMFETAMINE DIMESYLATE (VYVANSE) [Suspect]
     Indication: ATTENTION DEFICIT/HYPERACTIVITY DISORDER
     Dosage: 30 MG, UNK
     Route: 048
     Dates: start: 20080101

REACTIONS (2)
  - DYSTONIA [None]
  - OFF LABEL USE [None]
